FAERS Safety Report 6948469 (Version 6)
Quarter: 2013Q1

REPORT INFORMATION
  Report Type: Spontaneous
  Country: JP (occurrence: None)
  Receive Date: 20090305
  Receipt Date: 20121210
  Transmission Date: 20140127
  Serious: Yes (Death, Life-Threatening, Other)
  Sender: FDA-Public Use
  Company Number: THYM-1000921

PATIENT
  Age: 8 Month
  Sex: Male
  Weight: 8 kg

DRUGS (14)
  1. THYMOGLOBULIN [Suspect]
     Indication: BONE MARROW CONDITIONING REGIMEN
     Route: 042
     Dates: start: 20090217, end: 20090218
  2. METHYLPREDNISOLONE [Concomitant]
  3. HYDROXYZINE HYDROCHLORIDE [Concomitant]
  4. FLUDARABINE PHOSPHATE [Concomitant]
  5. CYCLOPHOSPHAMIDE (CYCLOPHOSPHAMIDE) [Concomitant]
  6. HYDROXYZINE HYDROCHLORIDE (HYDROXYZINE HYDROCHLORIDE) [Concomitant]
  7. FUROSEMIDE (FUROSEMIDE) [Concomitant]
  8. FAMOTIDINE (FAMOTIDINE) [Concomitant]
  9. DALTEPARIN SODIUM (DALTEPARIN SODIUM) UNKNOWN [Concomitant]
  10. GRANISETRON HYDROCHLORIDE (GRANISETRON HYDROCHLORIDE) [Concomitant]
  11. FRESH FROZEN PLASMA [Concomitant]
  12. THORACO-ABDOMINAL IRRADIATION [Concomitant]
  13. ETOPOSIDE (ETOPOSIDE) [Concomitant]
  14. CYTARABINE (CYTARABINE) [Concomitant]

REACTIONS (7)
  - Pulmonary haemorrhage [None]
  - Pyrexia [None]
  - Anaphylactic reaction [None]
  - Nausea [None]
  - Infusion related reaction [None]
  - Pneumonia staphylococcal [None]
  - Shock [None]
